FAERS Safety Report 4451203-1 (Version None)
Quarter: 2004Q3

REPORT INFORMATION
  Report Type: 
  Country: None (occurrence: None)
  Receive Date: 20040914
  Receipt Date: 20040827
  Transmission Date: 20050211
  Serious: Yes (Other)
  Sender: FDA-Public Use
  Company Number: WAES 0408USA02072

PATIENT
  Age: 76 Year
  Sex: Male

DRUGS (3)
  1. DECADRON [Suspect]
     Indication: PREMEDICATION
     Dosage: 4 MG PO
     Route: 048
  2. PEPCID [Suspect]
     Indication: PREMEDICATION
     Dosage: 10 MG PO
     Route: 048
  3. TAXOTERE [Suspect]
     Indication: PROSTATE CANCER
     Dosage: IV
     Route: 042

REACTIONS (1)
  - NEUTROPENIA [None]
